FAERS Safety Report 10588700 (Version 1)
Quarter: 2014Q4

REPORT INFORMATION
  Report Type: Report from Study
  Country: US (occurrence: US)
  Receive Date: 20141117
  Receipt Date: 20141117
  Transmission Date: 20150529
  Serious: Yes (Other)
  Sender: FDA-Public Use
  Company Number: US-GLAXOSMITHKLINE-US2014GSK022220

PATIENT

DRUGS (4)
  1. DINACICLIB [Suspect]
     Active Substance: DINACICLIB
     Indication: B-CELL SMALL LYMPHOCYTIC LYMPHOMA REFRACTORY
  2. OFATUMUMAB [Suspect]
     Active Substance: OFATUMUMAB
     Indication: LYMPHOCYTIC LYMPHOMA
  3. DINACICLIB [Suspect]
     Active Substance: DINACICLIB
     Indication: CHRONIC LYMPHOCYTIC LEUKAEMIA
  4. OFATUMUMAB [Suspect]
     Active Substance: OFATUMUMAB
     Indication: CHRONIC LYMPHOCYTIC LEUKAEMIA

REACTIONS (2)
  - Sepsis [Unknown]
  - Tumour lysis syndrome [Unknown]
